FAERS Safety Report 15190991 (Version 1)
Quarter: 2018Q3

REPORT INFORMATION
  Report Type: Spontaneous
  Country: AT (occurrence: AT)
  Receive Date: 20180724
  Receipt Date: 20180724
  Transmission Date: 20181010
  Serious: Yes (Hospitalization, Other)
  Sender: FDA-Public Use
  Company Number: AT-MYLANLABS-2018M1053610

PATIENT
  Age: 30 Year
  Sex: Male

DRUGS (2)
  1. CIPROFLOXACIN. [Suspect]
     Active Substance: CIPROFLOXACIN
     Indication: PROSTATITIS
     Dosage: 1000 MG, QD
     Dates: start: 201711
  2. CIPROFLOXACIN. [Suspect]
     Active Substance: CIPROFLOXACIN
     Dosage: 250 MG, QD
     Dates: start: 201711

REACTIONS (16)
  - Palpitations [Recovering/Resolving]
  - Paraesthesia [Recovering/Resolving]
  - Thinking abnormal [Recovering/Resolving]
  - Dyspnoea [Recovering/Resolving]
  - Hypoaesthesia [Recovering/Resolving]
  - Tinnitus [Recovered/Resolved]
  - Thrombosis [Recovering/Resolving]
  - Asthenia [Recovering/Resolving]
  - Dizziness [Recovering/Resolving]
  - Tendonitis [Recovering/Resolving]
  - Vision blurred [Recovered/Resolved]
  - Arthralgia [Recovering/Resolving]
  - Fatigue [Recovering/Resolving]
  - Tremor [Recovering/Resolving]
  - Gait disturbance [Recovering/Resolving]
  - Chest pain [Recovering/Resolving]
